FAERS Safety Report 6254370-2 (Version None)
Quarter: 2009Q3

REPORT INFORMATION
  Report Type: 
  Country: None (occurrence: None)
  Receive Date: 20090701
  Receipt Date: 20090701
  Transmission Date: 20100115
  Serious: Yes (Other)
  Sender: FDA-Public Use
  Company Number: None

PATIENT
  Age: 45 Month
  Sex: Male
  Weight: 81.6475 kg

DRUGS (2)
  1. TOPIRAMATE [Suspect]
     Indication: MIGRAINE
     Dosage: 1 AT BED TIME PO
     Route: 048
     Dates: start: 20090410, end: 20090601
  2. TIZANIDINE HCL [Suspect]
     Indication: MIGRAINE
     Dosage: AT BED TIME PO
     Route: 048
     Dates: start: 20090605, end: 20090626

REACTIONS (5)
  - CHEST DISCOMFORT [None]
  - HYPOAESTHESIA FACIAL [None]
  - LOWER RESPIRATORY TRACT INFECTION [None]
  - RASH PAPULAR [None]
  - SLEEP DISORDER [None]
